FAERS Safety Report 8400582-9 (Version None)
Quarter: 2012Q2

REPORT INFORMATION
  Report Type: 
  Country: None (occurrence: None)
  Receive Date: 20120531
  Receipt Date: 20120515
  Transmission Date: 20120825
  Serious: Yes (Other)
  Sender: FDA-Public Use
  Company Number: CHPA2012US011268

PATIENT
  Sex: Female

DRUGS (5)
  1. EXCEDRIN TENSION HEADACHE CAPLETS [Concomitant]
     Indication: MIGRAINE
     Dosage: 2 DF, UNK
     Route: 048
     Dates: start: 19640101
  2. EXCEDRIN (MIGRAINE) [Suspect]
     Indication: MIGRAINE
     Dosage: UNK DF, UNK
     Route: 048
     Dates: start: 19980101, end: 19980101
  3. TREXIMET [Concomitant]
     Indication: MIGRAINE
     Dosage: UNK
  4. VITAMINS NOS [Concomitant]
     Dosage: UNK
  5. DEMEROL [Concomitant]
     Indication: MIGRAINE
     Dosage: UNK

REACTIONS (2)
  - VAGINAL HAEMORRHAGE [None]
  - MALAISE [None]
